FAERS Safety Report 14727397 (Version 1)
Quarter: 2018Q2

REPORT INFORMATION
  Report Type: Report from Study
  Country: US (occurrence: US)
  Receive Date: 20180406
  Receipt Date: 20180406
  Transmission Date: 20180711
  Serious: Yes (Other)
  Sender: FDA-Public Use
  Company Number: US-REGENERON PHARMACEUTICALS, INC.-2018-19543

PATIENT

DRUGS (2)
  1. ARCALYST [Suspect]
     Active Substance: RILONACEPT
     Indication: CRYOPYRIN ASSOCIATED PERIODIC SYNDROME
     Dosage: 320MG / 160MG, DAY 1 / EVERY WEEK AFTER LOADING DOSE
     Route: 058
     Dates: start: 20180315
  2. ARCALYST [Suspect]
     Active Substance: RILONACEPT
     Dosage: 320MG / 160MG, DAY 1 / EVERY WEEK AFTER LOADING DOSE
     Route: 058
     Dates: start: 20180323

REACTIONS (9)
  - Nausea [Unknown]
  - Abdominal pain upper [Unknown]
  - Chills [Unknown]
  - Headache [Unknown]
  - Nausea [Unknown]
  - Cold sweat [Unknown]
  - Diarrhoea [Unknown]
  - Headache [Unknown]
  - Vomiting [Unknown]

NARRATIVE: CASE EVENT DATE: 20180323
